FAERS Safety Report 18806808 (Version 1)
Quarter: 2021Q1

REPORT INFORMATION
  Report Type: Report from Study
  Country: US (occurrence: US)
  Receive Date: 20210129
  Receipt Date: 20210129
  Transmission Date: 20210419
  Serious: Yes (Hospitalization, Other)
  Sender: FDA-Public Use
  Company Number: US-EMD SERONO-7215036

PATIENT
  Age: 36 Year
  Sex: Male
  Weight: 77 kg

DRUGS (7)
  1. REBIF [Suspect]
     Active Substance: INTERFERON BETA-1A
     Route: 058
     Dates: start: 20130205, end: 201309
  2. REBIF [Suspect]
     Active Substance: INTERFERON BETA-1A
     Route: 058
     Dates: start: 2012, end: 2012
  3. LYRICA [Concomitant]
     Active Substance: PREGABALIN
     Indication: MULTIPLE SCLEROSIS
  4. REBIF [Suspect]
     Active Substance: INTERFERON BETA-1A
     Indication: MULTIPLE SCLEROSIS
     Route: 058
     Dates: start: 201208, end: 2012
  5. BACLOFEN. [Concomitant]
     Active Substance: BACLOFEN
     Indication: PRODUCT USED FOR UNKNOWN INDICATION
  6. REBIF [Suspect]
     Active Substance: INTERFERON BETA-1A
     Route: 058
     Dates: start: 20120910
  7. GABAPENTIN. [Concomitant]
     Active Substance: GABAPENTIN
     Indication: MULTIPLE SCLEROSIS

REACTIONS (12)
  - Cerebral atrophy [Unknown]
  - Thyroid function test abnormal [Recovered/Resolved]
  - Multiple sclerosis relapse [Recovering/Resolving]
  - Nausea [Unknown]
  - Insomnia [Unknown]
  - Bedridden [Unknown]
  - Leukopenia [Recovering/Resolving]
  - Liver function test increased [Recovering/Resolving]
  - White blood cell count increased [Recovered/Resolved]
  - Movement disorder [Unknown]
  - Burning sensation [Not Recovered/Not Resolved]
  - Frequent bowel movements [Unknown]

NARRATIVE: CASE EVENT DATE: 201302
